FAERS Safety Report 19367210 (Version 1)
Quarter: 2021Q2

REPORT INFORMATION
  Report Type: Report from Study
  Country: FR (occurrence: FR)
  Receive Date: 20210602
  Receipt Date: 20210602
  Transmission Date: 20210717
  Serious: Yes (Other)
  Sender: FDA-Public Use
  Company Number: FR-TAKEDA-FR202000657

PATIENT
  Age: 61 Year
  Sex: Female

DRUGS (16)
  1. TEDUGLUTIDE [Suspect]
     Active Substance: TEDUGLUTIDE
     Dosage: 3.000, 7 PER WEEK
     Route: 065
     Dates: start: 20180604, end: 202006
  2. TEDUGLUTIDE [Suspect]
     Active Substance: TEDUGLUTIDE
     Dosage: 3.000, 7 PER WEEK
     Route: 065
     Dates: start: 20180604, end: 202006
  3. TEDUGLUTIDE [Suspect]
     Active Substance: TEDUGLUTIDE
     Dosage: 3.000, 7 PER WEEK
     Route: 065
     Dates: start: 20210426
  4. TEDUGLUTIDE [Suspect]
     Active Substance: TEDUGLUTIDE
     Indication: SHORT-BOWEL SYNDROME
     Dosage: 3.150 MILLIGRAM, 3 PER WEEK
     Route: 065
     Dates: start: 20170322, end: 20180603
  5. TEDUGLUTIDE [Suspect]
     Active Substance: TEDUGLUTIDE
     Dosage: 3.000, 7 PER WEEK
     Route: 065
     Dates: start: 20210426
  6. TEDUGLUTIDE [Suspect]
     Active Substance: TEDUGLUTIDE
     Indication: SHORT-BOWEL SYNDROME
     Dosage: 3.150 MILLIGRAM, 3 PER WEEK
     Route: 065
     Dates: start: 20170322, end: 20180603
  7. TEDUGLUTIDE [Suspect]
     Active Substance: TEDUGLUTIDE
     Dosage: 3.000, 7 PER WEEK
     Route: 065
     Dates: start: 20180604, end: 202006
  8. TEDUGLUTIDE [Suspect]
     Active Substance: TEDUGLUTIDE
     Dosage: 3.200, 7 PER WEEK
     Route: 065
     Dates: start: 202006, end: 20210425
  9. TEDUGLUTIDE [Suspect]
     Active Substance: TEDUGLUTIDE
     Dosage: 3.200, 7 PER WEEK
     Route: 065
     Dates: start: 202006, end: 20210425
  10. TEDUGLUTIDE [Suspect]
     Active Substance: TEDUGLUTIDE
     Dosage: 3.000, 7 PER WEEK
     Route: 065
     Dates: start: 20210426
  11. TEDUGLUTIDE [Suspect]
     Active Substance: TEDUGLUTIDE
     Dosage: 3.000, 7 PER WEEK
     Route: 065
     Dates: start: 20180604, end: 202006
  12. TEDUGLUTIDE [Suspect]
     Active Substance: TEDUGLUTIDE
     Indication: SHORT-BOWEL SYNDROME
     Dosage: 3.150 MILLIGRAM, 3 PER WEEK
     Route: 065
     Dates: start: 20170322, end: 20180603
  13. TEDUGLUTIDE [Suspect]
     Active Substance: TEDUGLUTIDE
     Indication: SHORT-BOWEL SYNDROME
     Dosage: 3.150 MILLIGRAM, 3 PER WEEK
     Route: 065
     Dates: start: 20170322, end: 20180603
  14. TEDUGLUTIDE [Suspect]
     Active Substance: TEDUGLUTIDE
     Dosage: 3.200, 7 PER WEEK
     Route: 065
     Dates: start: 202006, end: 20210425
  15. TEDUGLUTIDE [Suspect]
     Active Substance: TEDUGLUTIDE
     Dosage: 3.200, 7 PER WEEK
     Route: 065
     Dates: start: 202006, end: 20210425
  16. TEDUGLUTIDE [Suspect]
     Active Substance: TEDUGLUTIDE
     Dosage: 3.000, 7 PER WEEK
     Route: 065
     Dates: start: 20210426

REACTIONS (1)
  - Spinal fracture [Not Recovered/Not Resolved]

NARRATIVE: CASE EVENT DATE: 20190401
